FAERS Safety Report 9877408 (Version 1)
Quarter: 2014Q1

REPORT INFORMATION
  Report Type: Spontaneous
  Country: US (occurrence: US)
  Receive Date: 20140206
  Receipt Date: 20140206
  Transmission Date: 20141002
  Serious: Yes (Other)
  Sender: FDA-Public Use
  Company Number: US-BAYER-2014-016352

PATIENT
  Age: 59 Year
  Sex: Female
  Weight: 57 kg

DRUGS (6)
  1. ALEVE CAPLET [Suspect]
     Indication: PELVIC FRACTURE
     Dosage: 1 DF, UNK
     Route: 048
     Dates: end: 20140128
  2. TYLENOL [PARACETAMOL] [Concomitant]
  3. ACETAMINOPHEN [Concomitant]
  4. WELLBUTRIN [Concomitant]
  5. IBUPROFEN [Concomitant]
  6. BUPROPION [Concomitant]

REACTIONS (15)
  - Swelling face [Not Recovered/Not Resolved]
  - Swollen tongue [Not Recovered/Not Resolved]
  - Dyspnoea [Recovered/Resolved]
  - Cough [Not Recovered/Not Resolved]
  - Erythema [Not Recovered/Not Resolved]
  - Rash generalised [Not Recovered/Not Resolved]
  - Abdominal pain upper [Not Recovered/Not Resolved]
  - Dizziness [Recovered/Resolved]
  - Pyrexia [Not Recovered/Not Resolved]
  - Wheezing [Not Recovered/Not Resolved]
  - Blister [Not Recovered/Not Resolved]
  - Skin exfoliation [Not Recovered/Not Resolved]
  - Lip injury [Not Recovered/Not Resolved]
  - Lip swelling [Not Recovered/Not Resolved]
  - Feeling abnormal [Not Recovered/Not Resolved]
